FAERS Safety Report 18635972 (Version 1)
Quarter: 2020Q4

REPORT INFORMATION
  Report Type: Spontaneous
  Country: DE (occurrence: DE)
  Receive Date: 20201218
  Receipt Date: 20201218
  Transmission Date: 20210114
  Serious: Yes (Other)
  Sender: FDA-Public Use
  Company Number: DE-ELI_LILLY_AND_COMPANY-DE202012006031

PATIENT
  Sex: Male

DRUGS (4)
  1. LOPERAMIDE [Suspect]
     Active Substance: LOPERAMIDE
     Dosage: 2 MG (1-1-1 DAILY)
     Route: 065
     Dates: start: 202009, end: 202011
  2. DULOXETINE HYDROCHLORIDE. [Suspect]
     Active Substance: DULOXETINE HYDROCHLORIDE
     Dosage: 20 MG (1-0-1 DAILY)
     Route: 065
     Dates: start: 202009, end: 202011
  3. LOPERAMIDE [Suspect]
     Active Substance: LOPERAMIDE
     Indication: PRODUCT USED FOR UNKNOWN INDICATION
     Dosage: 2 MG (1-1-1 DAILY)
     Route: 065
     Dates: start: 2010
  4. DULOXETINE HYDROCHLORIDE. [Suspect]
     Active Substance: DULOXETINE HYDROCHLORIDE
     Indication: PRODUCT USED FOR UNKNOWN INDICATION
     Dosage: 20 MG (1-0-1 DAILY)
     Route: 065
     Dates: start: 2010

REACTIONS (5)
  - Musculoskeletal stiffness [Not Recovered/Not Resolved]
  - Pain in extremity [Recovering/Resolving]
  - Arthralgia [Recovering/Resolving]
  - Peripheral swelling [Recovering/Resolving]
  - Loss of personal independence in daily activities [Unknown]
